FAERS Safety Report 20705777 (Version 2)
Quarter: 2022Q2

REPORT INFORMATION
  Report Type: Spontaneous
  Country: None (occurrence: AU)
  Receive Date: 20220413
  Receipt Date: 20220519
  Transmission Date: 20220721
  Serious: Yes (Other)
  Sender: FDA-Public Use
  Company Number: AU-HILL DERMACEUTICALS, INC.-2127726

PATIENT
  Age: 76 Year
  Sex: Female

DRUGS (1)
  1. TOLAK [Suspect]
     Active Substance: FLUOROURACIL
     Indication: Actinic keratosis
     Route: 061
     Dates: start: 20220311, end: 20220321

REACTIONS (2)
  - Staphylococcal infection [Recovering/Resolving]
  - Hypersensitivity [Recovering/Resolving]
